FAERS Safety Report 7805119-0 (Version None)
Quarter: 2011Q4

REPORT INFORMATION
  Report Type: 
  Country: None (occurrence: None)
  Receive Date: 20111010
  Receipt Date: 20110927
  Transmission Date: 20120403
  Serious: Yes (Other)
  Sender: FDA-Public Use
  Company Number: PHHY2011JP82262

PATIENT
  Age: 19 Year
  Sex: Male

DRUGS (3)
  1. BASILIXIMAB [Suspect]
     Indication: LIVER TRANSPLANT
     Dosage: 20 MG, DAILY
     Route: 042
  2. MYCOPHENOLATE MOFETIL (CELLCEPT) [Concomitant]
     Indication: LIVER TRANSPLANT
     Dosage: 500 MG, UNK
  3. TACROLIMUS [Concomitant]
     Indication: LIVER TRANSPLANT
     Dosage: 1 MG, UNK
     Route: 048

REACTIONS (11)
  - SYSTEMIC INFLAMMATORY RESPONSE SYNDROME [None]
  - BODY TEMPERATURE INCREASED [None]
  - GRAND MAL CONVULSION [None]
  - STAPHYLOCOCCAL INFECTION [None]
  - BRAIN OEDEMA [None]
  - ENTEROCOCCAL INFECTION [None]
  - RESPIRATORY RATE INCREASED [None]
  - BLOOD PRESSURE INCREASED [None]
  - POSTERIOR REVERSIBLE ENCEPHALOPATHY SYNDROME [None]
  - HEART RATE INCREASED [None]
  - SEPSIS [None]
